FAERS Safety Report 8156389-3 (Version None)
Quarter: 2012Q1

REPORT INFORMATION
  Report Type: 
  Country: None (occurrence: None)
  Receive Date: 20120221
  Receipt Date: 20120221
  Transmission Date: 20120608
  Serious: Yes (Other)
  Sender: FDA-Public Use
  Company Number: None

PATIENT
  Age: 48 Year
  Sex: Female
  Weight: 79.1 kg

DRUGS (2)
  1. RIBASPHERE [Suspect]
     Dosage: 400MG BID ORAL
     Route: 048
  2. PEGASYS [Suspect]
     Indication: HEPATITIS C
     Dosage: 180MCG QWEEK SQ
     Route: 058
     Dates: start: 20120210, end: 20120211

REACTIONS (3)
  - DEAFNESS TRANSITORY [None]
  - HALLUCINATION [None]
  - EPISTAXIS [None]
